FAERS Safety Report 5160975-2 (Version None)
Quarter: 2006Q4

REPORT INFORMATION
  Report Type: 
  Country: None (occurrence: None)
  Receive Date: 20061130
  Receipt Date: 20060607
  Transmission Date: 20070319
  Serious: No
  Sender: FDA-Public Use
  Company Number: US-BRISTOL-MYERS SQUIBB COMPANY-13403894

PATIENT
  Sex: Female

DRUGS (3)
  1. AVALIDE [Suspect]
     Route: 048
     Dates: start: 20040101
  2. ROSIGLITAZONE [Concomitant]
  3. LEVOTHYROXINE SODIUM [Concomitant]

REACTIONS (1)
  - VISION BLURRED [None]
